FAERS Safety Report 9675252 (Version 3)
Quarter: 2014Q3

REPORT INFORMATION
  Report Type: Spontaneous
  Country: US (occurrence: None)
  Receive Date: 20131105
  Receipt Date: 20140813
  Transmission Date: 20150326
  Serious: Yes (Death, Hospitalization)
  Sender: FDA-Public Use
  Company Number: 2013US002763

PATIENT
  Age: 69 Year
  Sex: Female

DRUGS (5)
  1. ICLUSIG [Suspect]
     Active Substance: PONATINIB
     Indication: CHRONIC MYELOID LEUKAEMIA
     Route: 048
     Dates: end: 20131017
  2. IDARUBICIN [Concomitant]
     Active Substance: IDARUBICIN
  3. DAUNORUBICIN [Concomitant]
     Active Substance: DAUNORUBICIN
  4. MITOXANTRONE [Concomitant]
     Active Substance: MITOXANTRONE HYDROCHLORIDE
  5. CYTARABINE. [Concomitant]
     Active Substance: CYTARABINE

REACTIONS (5)
  - Blast crisis in myelogenous leukaemia [None]
  - Necrotising fasciitis [None]
  - Immunosuppression [None]
  - Full blood count decreased [None]
  - Death [None]

NARRATIVE: CASE EVENT DATE: 20130918
